FAERS Safety Report 11787264 (Version 1)
Quarter: 2015Q4

REPORT INFORMATION
  Report Type: Report from Study
  Country: US (occurrence: US)
  Receive Date: 20151130
  Receipt Date: 20151130
  Transmission Date: 20160305
  Serious: Yes (Hospitalization)
  Sender: FDA-Public Use
  Company Number: US-DEP_13110_2015

PATIENT
  Age: 59 Year
  Sex: Male
  Weight: 117 kg

DRUGS (2)
  1. NUCYNTA [Suspect]
     Active Substance: TAPENTADOL HYDROCHLORIDE
     Dosage: MAXIMUM DAILY DOSE OF 400 MG
     Route: 048
     Dates: start: 201505, end: 20151104
  2. NUCYNTA [Suspect]
     Active Substance: TAPENTADOL HYDROCHLORIDE
     Indication: PAIN
     Dosage: MAXIMUM DAILY DOSE OF 600 MG
     Route: 048
     Dates: start: 20151104

REACTIONS (5)
  - Drug ineffective [Unknown]
  - Localised infection [Unknown]
  - Product quality issue [Unknown]
  - Limb injury [Unknown]
  - Joint injury [Unknown]

NARRATIVE: CASE EVENT DATE: 2015
